FAERS Safety Report 4867494-9 (Version None)
Quarter: 2005Q4

REPORT INFORMATION
  Report Type: 
  Country: None (occurrence: None)
  Receive Date: 20051222
  Receipt Date: 20051212
  Transmission Date: 20060501
  Serious: Yes (Death)
  Sender: FDA-Public Use
  Company Number: 2005S1011932

PATIENT
  Age: 80 Year
  Sex: Female

DRUGS (6)
  1. CLOZAPINE [Suspect]
     Indication: PARKINSON'S DISEASE
     Dosage: 75 MG; HS; ORAL
     Route: 048
     Dates: start: 20050818, end: 20051101
  2. PAROXETINE HYDROCHLORIDE [Concomitant]
  3. QUETIAPINE FUMARATE [Concomitant]
  4. CARBIDOPA AND LEVODOPA [Concomitant]
  5. MIDODRINE HCL [Concomitant]
  6. DONEPEZIL HYDROCHLORIDE [Concomitant]

REACTIONS (1)
  - CEREBRAL HAEMORRHAGE [None]
